FAERS Safety Report 9629926 (Version 2)
Quarter: 2013Q4

REPORT INFORMATION
  Report Type: Spontaneous
  Country: KR (occurrence: KR)
  Receive Date: 20131017
  Receipt Date: 20131022
  Transmission Date: 20140711
  Serious: Yes (Hospitalization)
  Sender: FDA-Public Use
  Company Number: KR-PFIZER INC-2013291318

PATIENT
  Age: 46 Year
  Sex: Male

DRUGS (8)
  1. GEMCITABINE [Suspect]
     Indication: PANCREATIC CARCINOMA RECURRENT
     Dosage: 1000 MG/M2, 2 CYCLES
  2. CISPLATIN [Suspect]
     Indication: PANCREATIC CARCINOMA RECURRENT
     Dosage: 70 MG/M2, 2 CYCLES
  3. FLUOROURACIL [Suspect]
     Indication: PANCREATIC CARCINOMA RECURRENT
     Dosage: UNKNOWN DOSAGE, ALONG WITH RADIOTHERAPY
  4. FLUOROURACIL [Suspect]
     Dosage: 600 MG/M2, 24 CYCLES
     Route: 042
  5. FLUOROURACIL [Suspect]
     Dosage: 400 MG/M2, 24 CYCLES
     Route: 040
  6. OXALIPLATIN [Suspect]
     Indication: PANCREATIC CARCINOMA RECURRENT
     Dosage: 85 MG/M2, 24 CYCLES
  7. LEUCOVORIN [Suspect]
     Indication: PANCREATIC CARCINOMA RECURRENT
     Dosage: 200 MG/M2, 24 CYCLES
  8. INSULIN [Concomitant]
     Indication: DIABETES MELLITUS

REACTIONS (1)
  - Actinomycosis [Unknown]
